FAERS Safety Report 13270414 (Version 1)
Quarter: 2017Q1

REPORT INFORMATION
  Report Type: Spontaneous
  Country: US (occurrence: US)
  Receive Date: 20170224
  Receipt Date: 20170224
  Transmission Date: 20170428
  Serious: No
  Sender: FDA-Public Use
  Company Number: US-ELI_LILLY_AND_COMPANY-US_000440462

PATIENT
  Sex: Male
  Weight: 95.46 kg

DRUGS (2)
  1. HUMALOG [Suspect]
     Active Substance: INSULIN LISPRO
     Indication: DIABETES MELLITUS
     Dosage: 20 U, DAILY (1/D)
     Route: 058
  2. HUMULIN NOS [Suspect]
     Active Substance: INSULIN HUMAN
     Indication: DIABETES MELLITUS
     Dosage: 25 U, EACH MORNING
     Route: 058

REACTIONS (9)
  - Visual acuity reduced [Unknown]
  - Hypoglycaemia [Not Recovered/Not Resolved]
  - Visual impairment [Unknown]
  - Pain in extremity [Unknown]
  - Blood glucose increased [Not Recovered/Not Resolved]
  - Abdominal pain upper [Unknown]
  - Weight increased [Unknown]
  - Diplopia [Unknown]
  - Drug ineffective [Unknown]

NARRATIVE: CASE EVENT DATE: 2002
